FAERS Safety Report 25128640 (Version 1)
Quarter: 2025Q1

REPORT INFORMATION
  Report Type: Report from Study
  Country: US (occurrence: US)
  Receive Date: 20250327
  Receipt Date: 20250327
  Transmission Date: 20250409
  Serious: Yes (Other)
  Sender: UCB
  Company Number: US-UCBSA-2025008448

PATIENT
  Age: 46 Year
  Sex: Female

DRUGS (1)
  1. BIMEKIZUMAB [Suspect]
     Active Substance: BIMEKIZUMAB
     Indication: Psoriasis
     Dosage: 320 MILLIGRAM, EV 4 WEEKS
     Route: 058
     Dates: start: 20250211

REACTIONS (11)
  - Oesophageal candidiasis [Not Recovered/Not Resolved]
  - Immunodeficiency [Not Recovered/Not Resolved]
  - Oral candidiasis [Not Recovered/Not Resolved]
  - Pyrexia [Recovered/Resolved]
  - Injection site pain [Not Recovered/Not Resolved]
  - Injection site induration [Not Recovered/Not Resolved]
  - Injection site discolouration [Not Recovered/Not Resolved]
  - Fatigue [Not Recovered/Not Resolved]
  - Migraine [Not Recovered/Not Resolved]
  - Psoriasis [Not Recovered/Not Resolved]
  - Inappropriate schedule of product administration [Unknown]

NARRATIVE: CASE EVENT DATE: 20250211
